FAERS Safety Report 17517103 (Version 1)
Quarter: 2020Q1

REPORT INFORMATION
  Report Type: Report from Study
  Country: HU (occurrence: HU)
  Receive Date: 20200309
  Receipt Date: 20200309
  Transmission Date: 20200409
  Serious: Yes (Other)
  Sender: FDA-Public Use
  Company Number: HU-MYLANLABS-2020M1015800

PATIENT
  Age: 59 Year
  Sex: Female
  Weight: 70 kg

DRUGS (5)
  1. KISQALI [Suspect]
     Active Substance: RIBOCICLIB
     Indication: BREAST CANCER METASTATIC
     Dosage: 600 MG, DAILY (FOR 21 DAYS)
     Route: 048
     Dates: start: 20191025
  2. LETROZOLE. [Suspect]
     Active Substance: LETROZOLE
     Indication: BREAST CANCER METASTATIC
     Dosage: 1 DF(1 TABLET)
     Route: 065
     Dates: start: 20190909
  3. KISQALI [Suspect]
     Active Substance: RIBOCICLIB
     Dosage: UNK
     Dates: start: 20191216
  4. KISQALI [Suspect]
     Active Substance: RIBOCICLIB
     Dosage: 2 DF, QD
     Route: 065
     Dates: start: 20200121
  5. ZOLEDRONIC ACID [Suspect]
     Active Substance: ZOLEDRONIC ACID
     Indication: BREAST CANCER METASTATIC
     Dosage: 1 DF, Q4W (1 VIAL)
     Route: 065
     Dates: start: 20190910

REACTIONS (4)
  - Neutropenia [Recovering/Resolving]
  - Alopecia [Unknown]
  - Lymphoedema [Recovering/Resolving]
  - Bone pain [Recovered/Resolved]

NARRATIVE: CASE EVENT DATE: 20191121
